FAERS Safety Report 6566932-3 (Version None)
Quarter: 2010Q1

REPORT INFORMATION
  Report Type: 
  Country: None (occurrence: None)
  Receive Date: 20100202
  Receipt Date: 20100121
  Transmission Date: 20100710
  Serious: Yes (Other)
  Sender: FDA-Public Use
  Company Number: US-SANOFI-AVENTIS-2010SA004558

PATIENT
  Age: 73 Year
  Sex: Female

DRUGS (4)
  1. LANTUS [Suspect]
     Indication: TYPE 2 DIABETES MELLITUS
     Dosage: DOSE:10 UNIT(S)
     Route: 058
     Dates: start: 20070701, end: 20090921
  2. LANTUS [Suspect]
     Dosage: DOSE:8 UNIT(S)
     Route: 058
     Dates: start: 20090922
  3. SOLOSTAR [Suspect]
     Indication: TYPE 2 DIABETES MELLITUS
     Dates: start: 20070701
  4. ANTIHYPERTENSIVES [Concomitant]

REACTIONS (2)
  - MALIGNANT MELANOMA [None]
  - WEIGHT DECREASED [None]
